FAERS Safety Report 23073214 (Version 2)
Quarter: 2023Q4

REPORT INFORMATION
  Report Type: Report from Study
  Country: AU (occurrence: AU)
  Receive Date: 20231017
  Receipt Date: 20231023
  Transmission Date: 20240110
  Serious: Yes (Other)
  Sender: FDA-Public Use
  Company Number: AU-BAYER-2023A143205

PATIENT
  Sex: Female

DRUGS (2)
  1. EYLEA [Suspect]
     Active Substance: AFLIBERCEPT
     Indication: Neovascular age-related macular degeneration
     Dosage: TO BOTH EYES EVERY 7 WEEKS, SOLUTION FOR INJECTION, 40MG/ML
     Route: 031
  2. EYLEA [Suspect]
     Active Substance: AFLIBERCEPT
     Dosage: UNK UNK, ONCE, BOTH EYES, SOLUTION FOR INJECTION, 40MG/ML
     Route: 031
     Dates: start: 20230802

REACTIONS (2)
  - Blindness transient [Recovered/Resolved]
  - Visual impairment [Unknown]

NARRATIVE: CASE EVENT DATE: 20230802
